FAERS Safety Report 7473034-0 (Version None)
Quarter: 2011Q2

REPORT INFORMATION
  Report Type: 
  Country: None (occurrence: None)
  Receive Date: 20110511
  Receipt Date: 20110503
  Transmission Date: 20111010
  Serious: Yes (Death)
  Sender: FDA-Public Use
  Company Number: FR-ROCHE-720220

PATIENT
  Sex: Male
  Weight: 95 kg

DRUGS (1)
  1. COPEGUS [Suspect]
     Indication: HEPATITIS C
     Dosage: DRUG REPORTED AS COPEGUS 200
     Route: 048
     Dates: start: 20100401, end: 20100518

REACTIONS (2)
  - INTRA-UTERINE DEATH [None]
  - PREGNANCY [None]
